FAERS Safety Report 15998194 (Version 2)
Quarter: 2019Q1

REPORT INFORMATION
  Report Type: Spontaneous
  Country: GB (occurrence: GB)
  Receive Date: 20190223
  Receipt Date: 20190315
  Transmission Date: 20190418
  Serious: Yes (Hospitalization, Other)
  Sender: FDA-Public Use
  Company Number: GB-ACCORD-108976

PATIENT
  Sex: Female

DRUGS (2)
  1. RISPERIDONE. [Suspect]
     Active Substance: RISPERIDONE
     Indication: AGGRESSION
     Route: 065
  2. QUETIAPINE. [Interacting]
     Active Substance: QUETIAPINE
     Indication: AGGRESSION
     Route: 048

REACTIONS (6)
  - Somnolence [Recovering/Resolving]
  - Acute kidney injury [Unknown]
  - Dehydration [Recovering/Resolving]
  - Pneumonia aspiration [Unknown]
  - Ischaemic stroke [Recovered/Resolved]
  - Drug interaction [Unknown]
